FAERS Safety Report 7496387-6 (Version None)
Quarter: 2011Q2

REPORT INFORMATION
  Report Type: 
  Country: None (occurrence: None)
  Receive Date: 20110513
  Receipt Date: 20110509
  Transmission Date: 20111010
  Serious: Yes (Hospitalization, Other)
  Sender: FDA-Public Use
  Company Number: 2010AC000384

PATIENT
  Age: 80 Year
  Sex: Female

DRUGS (16)
  1. LISINOPRIL [Concomitant]
  2. ASPIRIN [Concomitant]
  3. AVELOX [Concomitant]
  4. HYDROCHLOROTHIAZIDE [Concomitant]
  5. FUROSEMIDE [Concomitant]
  6. NEXIUM [Concomitant]
  7. ACTONEL [Concomitant]
  8. SINGULAIR [Concomitant]
  9. ZYRTEC [Concomitant]
  10. DIGOXIN [Suspect]
     Indication: ATRIAL FIBRILLATION
     Dosage: 0.0625 MG; QD; PO
     Route: 048
     Dates: start: 20071111, end: 20080210
  11. SPIRIVA [Concomitant]
  12. DIGOXIN [Suspect]
     Dosage: PO
     Route: 048
     Dates: start: 20050101, end: 20071101
  13. ATENOLOL [Concomitant]
  14. LIPITOR [Concomitant]
  15. DILTIAZEM [Concomitant]
  16. NITROGLYCERIN [Concomitant]

REACTIONS (19)
  - UNEVALUABLE EVENT [None]
  - PAIN [None]
  - ECONOMIC PROBLEM [None]
  - NAUSEA [None]
  - PALPITATIONS [None]
  - ANXIETY [None]
  - HYPOTENSION [None]
  - THROAT IRRITATION [None]
  - MULTIPLE INJURIES [None]
  - CHEST PAIN [None]
  - CONFUSIONAL STATE [None]
  - DYSPNOEA [None]
  - ARRHYTHMIA [None]
  - VISUAL IMPAIRMENT [None]
  - CARDIAC DISORDER [None]
  - BRADYCARDIA [None]
  - DIZZINESS [None]
  - DYSPHONIA [None]
  - HEART INJURY [None]
